FAERS Safety Report 16693435 (Version 1)
Quarter: 2019Q3

REPORT INFORMATION
  Report Type: Report from Study
  Country: US (occurrence: US)
  Receive Date: 20190812
  Receipt Date: 20190812
  Transmission Date: 20191004
  Serious: Yes (Other)
  Sender: FDA-Public Use
  Company Number: US-TESARO-2018-TSO1263-US

PATIENT
  Sex: Female

DRUGS (1)
  1. VARUBI [Suspect]
     Active Substance: ROLAPITANT
     Indication: PRODUCT USED FOR UNKNOWN INDICATION
     Dosage: 180 MG, Q2 WEEKS
     Route: 048
     Dates: start: 20180614

REACTIONS (29)
  - Neoplasm progression [Not Recovered/Not Resolved]
  - Incision site complication [Unknown]
  - Abdominal tenderness [Not Recovered/Not Resolved]
  - Mean cell haemoglobin concentration increased [Unknown]
  - Anxiety [Not Recovered/Not Resolved]
  - Diarrhoea [Unknown]
  - Night sweats [Not Recovered/Not Resolved]
  - Carcinoembryonic antigen increased [Not Recovered/Not Resolved]
  - Blood urea decreased [Unknown]
  - Red blood cell count decreased [Unknown]
  - Nausea [Not Recovered/Not Resolved]
  - Dyspnoea [Not Recovered/Not Resolved]
  - Fatigue [Not Recovered/Not Resolved]
  - Rash [Not Recovered/Not Resolved]
  - Depression [Unknown]
  - Basophil percentage increased [Unknown]
  - Surgery [Unknown]
  - Insomnia [Not Recovered/Not Resolved]
  - Malaise [Unknown]
  - Blood potassium decreased [Unknown]
  - Asthenia [Unknown]
  - Abdominal discomfort [Unknown]
  - Depressed mood [Not Recovered/Not Resolved]
  - Vomiting [Unknown]
  - Blood creatinine decreased [Unknown]
  - Abdominal pain [Not Recovered/Not Resolved]
  - Back pain [Not Recovered/Not Resolved]
  - Blood osmolarity decreased [Not Recovered/Not Resolved]
  - Basophil count increased [Unknown]

NARRATIVE: CASE EVENT DATE: 201811
